FAERS Safety Report 11429391 (Version 1)
Quarter: 2015Q3

REPORT INFORMATION
  Report Type: Spontaneous
  Country: US (occurrence: US)
  Receive Date: 20150828
  Receipt Date: 20150828
  Transmission Date: 20151125
  Serious: No
  Sender: FDA-Public Use
  Company Number: US-ROCHE-1200640

PATIENT
  Sex: Male

DRUGS (3)
  1. RIBAVIRIN. [Suspect]
     Active Substance: RIBAVIRIN
     Indication: CHRONIC HEPATITIS C
     Route: 065
     Dates: start: 20130309
  2. TELAPREVIR [Concomitant]
     Active Substance: TELAPREVIR
     Route: 065
     Dates: start: 20130309
  3. PEGASYS [Suspect]
     Active Substance: PEGINTERFERON ALFA-2A
     Indication: CHRONIC HEPATITIS C
     Route: 058
     Dates: start: 20130309

REACTIONS (7)
  - Hypoaesthesia [Unknown]
  - Pyrexia [Unknown]
  - Erythema [Unknown]
  - Dry mouth [Unknown]
  - Tremor [Unknown]
  - Head discomfort [Unknown]
  - Musculoskeletal discomfort [Unknown]
